FAERS Safety Report 6466393-9 (Version None)
Quarter: 2009Q4

REPORT INFORMATION
  Report Type: 
  Country: None (occurrence: None)
  Receive Date: 20091202
  Receipt Date: 20091126
  Transmission Date: 20100525
  Serious: Yes (Hospitalization)
  Sender: FDA-Public Use
  Company Number: JP-ABBOTT-09P-087-0574402-00

PATIENT
  Sex: Female
  Weight: 51.5 kg

DRUGS (27)
  1. HUMIRA [Suspect]
     Indication: RHEUMATOID ARTHRITIS
     Route: 058
     Dates: start: 20090514, end: 20090514
  2. DICLOFENAC SODIUM [Suspect]
     Indication: RHEUMATOID ARTHRITIS
     Route: 048
     Dates: end: 20090515
  3. DICLOFENAC SODIUM [Suspect]
     Route: 048
     Dates: start: 20090518
  4. BUCILLAMINE [Concomitant]
     Indication: RHEUMATOID ARTHRITIS
     Route: 048
     Dates: end: 20090515
  5. BUCILLAMINE [Concomitant]
     Route: 048
     Dates: start: 20090518
  6. METHYLPREDNISOLONE [Concomitant]
     Indication: RHEUMATOID ARTHRITIS
     Route: 048
  7. AMLODIPINE BESYLATE [Concomitant]
     Indication: HYPERTENSION
     Route: 048
     Dates: end: 20090515
  8. AMLODIPINE BESYLATE [Concomitant]
     Route: 048
     Dates: start: 20090518
  9. ROSUVASTATIN CALCIUM [Concomitant]
     Indication: HYPERLIPIDAEMIA
     Dates: end: 20090515
  10. ROSUVASTATIN CALCIUM [Concomitant]
     Route: 051
     Dates: start: 20090518
  11. FAMOTIDINE [Concomitant]
     Indication: PROPHYLAXIS AGAINST GASTROINTESTINAL ULCER
     Route: 048
     Dates: end: 20090515
  12. FAMOTIDINE [Concomitant]
     Route: 048
     Dates: start: 20090518
  13. BENEXATE HYDROCHLORIDE [Concomitant]
     Indication: PROPHYLAXIS AGAINST GASTROINTESTINAL ULCER
     Route: 048
  14. SODIUM GUALENATE [Concomitant]
     Indication: PROPHYLAXIS AGAINST GASTROINTESTINAL ULCER
  15. ALENDRONATE SODIUM [Concomitant]
     Indication: OSTEOPOROSIS
     Route: 048
  16. FEXOFENADINE HCL [Concomitant]
     Indication: SEASONAL ALLERGY
     Route: 048
  17. LIMAPROST ALFADEX [Concomitant]
     Indication: LUMBAR SPINAL STENOSIS
  18. ALENDRONATE SODIUM [Concomitant]
     Indication: OSTEOPOROSIS
     Dates: end: 20090515
  19. ALENDRONATE SODIUM [Concomitant]
     Route: 048
     Dates: start: 20090518
  20. BENEXATE HYDROCHLORIDE BETADEX [Concomitant]
     Indication: PROPHYLAXIS AGAINST GASTROINTESTINAL ULCER
     Route: 048
     Dates: end: 20090515
  21. BENEXATE HYDROCHLORIDE BETADEX [Concomitant]
     Route: 048
     Dates: start: 20090518
  22. SODIUM GUALENATE HYDRATE - L -GLUTAMINE [Concomitant]
     Indication: PROPHYLAXIS AGAINST GASTROINTESTINAL ULCER
     Dates: end: 20090515
  23. SODIUM GUALENATE HYDRATE - L -GLUTAMINE [Concomitant]
     Dates: start: 20090518
  24. FEXOFENADINE HCL [Concomitant]
     Route: 048
     Dates: end: 20090515
  25. FEXOFENADINE HCL [Concomitant]
     Dates: start: 20090518
  26. LIMAPROST ALFADEX [Concomitant]
     Dates: end: 20090515
  27. LIMAPROST ALFADEX [Concomitant]
     Dates: start: 20090518

REACTIONS (1)
  - SMALL INTESTINE ULCER [None]
